FAERS Safety Report 13058098 (Version 4)
Quarter: 2017Q4

REPORT INFORMATION
  Report Type: Spontaneous
  Country: TN (occurrence: TN)
  Receive Date: 20161223
  Receipt Date: 20171003
  Transmission Date: 20180320
  Serious: Yes (Hospitalization, Other)
  Sender: FDA-Public Use
  Company Number: PHHY2016TN175933

PATIENT
  Age: 18 Year
  Sex: Female

DRUGS (2)
  1. CARBAMAZEPINE. [Suspect]
     Active Substance: CARBAMAZEPINE
     Indication: PARTIAL SEIZURES
     Dosage: 200 MG, QD
     Route: 065
  2. PHENOBARBITAL. [Interacting]
     Active Substance: PHENOBARBITAL
     Indication: PARTIAL SEIZURES
     Dosage: 50 MG, QD
     Route: 065

REACTIONS (4)
  - Eosinophilia [Unknown]
  - Therapeutic product cross-reactivity [Unknown]
  - Hypersensitivity vasculitis [Recovered/Resolved]
  - Purpura [Unknown]
